FAERS Safety Report 5341712-5 (Version None)
Quarter: 2007Q2

REPORT INFORMATION
  Report Type: 
  Country: None (occurrence: None)
  Receive Date: 20070529
  Receipt Date: 20070529
  Transmission Date: 20071010
  Serious: Yes (Life-Threatening, Hospitalization, Other)
  Sender: FDA-Public Use
  Company Number: None

PATIENT
  Age: 57 Year
  Sex: Male
  Weight: 122.9248 kg

DRUGS (7)
  1. AVANDIA [Suspect]
     Indication: DIABETES MELLITUS
     Dosage: 4MG DAILY 047
     Dates: start: 20060320, end: 20070525
  2. METFORMIN HCL [Concomitant]
  3. WELCHOL [Concomitant]
  4. ZESTRIL [Concomitant]
  5. NEXIUM [Concomitant]
  6. OXYCODONE AND ACETAMINOPHEN [Concomitant]
  7. ACETAMINOPHEN W/ CODEINE NO. 3 [Concomitant]

REACTIONS (3)
  - CORONARY ARTERY OCCLUSION [None]
  - MYOCARDIAL INFARCTION [None]
  - STENT OCCLUSION [None]
